FAERS Safety Report 4886117-6 (Version None)
Quarter: 2006Q1

REPORT INFORMATION
  Report Type: 
  Country: None (occurrence: None)
  Receive Date: 20060117
  Receipt Date: 20060104
  Transmission Date: 20060701
  Serious: Yes (Hospitalization, Other)
  Sender: FDA-Public Use
  Company Number: 2005162288

PATIENT
  Age: 56 Year
  Sex: Male

DRUGS (8)
  1. LYRICA [Suspect]
     Indication: POLYNEUROPATHY
     Dosage: 300 MG (150 MG, 2 IN 1 D), ORAL
     Route: 048
     Dates: start: 20050829, end: 20050914
  2. TRYPTIZOL (AMITRIPTYLINE HYDROCHLORIDE) [Concomitant]
  3. DICLOFENAC SODIUM [Concomitant]
  4. PANTOPRAZOLE SODIUM [Concomitant]
  5. CODEINE PHOSPHATE (CODEINE PHOSPHATE) [Concomitant]
  6. VITAMINS (VITAMINS) [Concomitant]
  7. NASONEX [Concomitant]
  8. AERIUS (DESLORATADINE) [Concomitant]

REACTIONS (7)
  - BACTERIAL INFECTION [None]
  - INFECTION IN AN IMMUNOCOMPROMISED HOST [None]
  - NASOPHARYNGITIS [None]
  - PNEUMONIA [None]
  - RESPIRATORY TRACT INFECTION VIRAL [None]
  - SEPTIC SHOCK [None]
  - SUPERINFECTION [None]
